FAERS Safety Report 14690072 (Version 7)
Quarter: 2018Q2

REPORT INFORMATION
  Report Type: Report from Study
  Country: FR (occurrence: FR)
  Receive Date: 20180328
  Receipt Date: 20180622
  Transmission Date: 20180711
  Serious: Yes (Other)
  Sender: FDA-Public Use
  Company Number: FR-GILEAD-2018-0323427

PATIENT
  Age: 85 Year
  Sex: Female

DRUGS (229)
  1. METFORMIN [Suspect]
     Active Substance: METFORMIN HYDROCHLORIDE
     Dosage: UNK
     Route: 065
  2. METFORMIN [Suspect]
     Active Substance: METFORMIN HYDROCHLORIDE
     Route: 065
  3. METFORMIN [Suspect]
     Active Substance: METFORMIN HYDROCHLORIDE
     Dosage: UNK
     Route: 065
  4. METFORMIN [Suspect]
     Active Substance: METFORMIN HYDROCHLORIDE
     Dosage: UNK
     Route: 065
  5. METFORMIN [Suspect]
     Active Substance: METFORMIN HYDROCHLORIDE
     Dosage: UNK
     Route: 065
  6. METFORMIN [Suspect]
     Active Substance: METFORMIN HYDROCHLORIDE
     Dosage: UNK
     Route: 065
  7. METFORMIN [Suspect]
     Active Substance: METFORMIN HYDROCHLORIDE
     Dosage: UNK
     Route: 065
  8. DARUNAVIR [Concomitant]
     Active Substance: DARUNAVIR
     Dosage: UNK
  9. DARUNAVIR [Concomitant]
     Active Substance: DARUNAVIR
     Dosage: UNK
  10. DARUNAVIR [Concomitant]
     Active Substance: DARUNAVIR
     Dosage: UNK
  11. DARUNAVIR [Concomitant]
     Active Substance: DARUNAVIR
     Route: 065
  12. DARUNAVIR [Concomitant]
     Active Substance: DARUNAVIR
     Dosage: UNK
  13. DARUNAVIR [Concomitant]
     Active Substance: DARUNAVIR
     Dosage: UNK
  14. DARUNAVIR [Concomitant]
     Active Substance: DARUNAVIR
     Dosage: UNK
  15. DARUNAVIR [Concomitant]
     Active Substance: DARUNAVIR
     Dosage: UNK
  16. DARUNAVIR [Concomitant]
     Active Substance: DARUNAVIR
     Dosage: UNK
  17. DARUNAVIR [Concomitant]
     Active Substance: DARUNAVIR
     Dosage: UNK
  18. DARUNAVIR [Concomitant]
     Active Substance: DARUNAVIR
     Dosage: UNK
  19. RALTEGRAVIR. [Concomitant]
     Active Substance: RALTEGRAVIR
     Dosage: UNK
  20. RALTEGRAVIR. [Concomitant]
     Active Substance: RALTEGRAVIR
     Dosage: UNK
  21. RALTEGRAVIR. [Concomitant]
     Active Substance: RALTEGRAVIR
     Dosage: UNK
  22. RALTEGRAVIR. [Concomitant]
     Active Substance: RALTEGRAVIR
     Dosage: UNK
  23. RALTEGRAVIR. [Concomitant]
     Active Substance: RALTEGRAVIR
     Dosage: UNK
  24. RALTEGRAVIR. [Concomitant]
     Active Substance: RALTEGRAVIR
     Dosage: UNK
  25. RALTEGRAVIR. [Concomitant]
     Active Substance: RALTEGRAVIR
     Dosage: UNK
  26. METFORMIN [Suspect]
     Active Substance: METFORMIN HYDROCHLORIDE
     Dosage: UNK
     Route: 065
  27. METFORMIN [Suspect]
     Active Substance: METFORMIN HYDROCHLORIDE
     Dosage: UNK
     Route: 065
  28. METFORMIN [Suspect]
     Active Substance: METFORMIN HYDROCHLORIDE
     Dosage: UNK
     Route: 065
  29. METFORMIN [Suspect]
     Active Substance: METFORMIN HYDROCHLORIDE
     Dosage: UNK
     Route: 065
  30. METFORMIN [Suspect]
     Active Substance: METFORMIN HYDROCHLORIDE
     Dosage: UNK
     Route: 065
  31. METFORMIN [Suspect]
     Active Substance: METFORMIN HYDROCHLORIDE
     Dosage: UNK
     Route: 065
  32. METFORMIN [Suspect]
     Active Substance: METFORMIN HYDROCHLORIDE
     Dosage: UNK
     Route: 065
  33. DARUNAVIR [Concomitant]
     Active Substance: DARUNAVIR
  34. DARUNAVIR [Concomitant]
     Active Substance: DARUNAVIR
     Dosage: UNK
  35. DARUNAVIR [Concomitant]
     Active Substance: DARUNAVIR
     Dosage: UNK
  36. DARUNAVIR [Concomitant]
     Active Substance: DARUNAVIR
     Dosage: UNK
  37. DARUNAVIR [Concomitant]
     Active Substance: DARUNAVIR
     Dosage: UNK
  38. DARUNAVIR [Concomitant]
     Active Substance: DARUNAVIR
     Dosage: UNK
  39. DARUNAVIR [Concomitant]
     Active Substance: DARUNAVIR
     Dosage: UNK
  40. DARUNAVIR [Concomitant]
     Active Substance: DARUNAVIR
     Dosage: UNK
  41. DARUNAVIR [Concomitant]
     Active Substance: DARUNAVIR
     Dosage: UNK
  42. DARUNAVIR [Concomitant]
     Active Substance: DARUNAVIR
     Dosage: UNK
  43. DARUNAVIR [Concomitant]
     Active Substance: DARUNAVIR
     Dosage: UNK
  44. DARUNAVIR [Concomitant]
     Active Substance: DARUNAVIR
     Dosage: UNK
  45. DARUNAVIR [Concomitant]
     Active Substance: DARUNAVIR
     Dosage: UNK
  46. DARUNAVIR [Concomitant]
     Active Substance: DARUNAVIR
     Dosage: UNK
  47. DARUNAVIR [Concomitant]
     Active Substance: DARUNAVIR
     Dosage: UNK
  48. DARUNAVIR [Concomitant]
     Active Substance: DARUNAVIR
     Dosage: UNK
  49. DARUNAVIR [Concomitant]
     Active Substance: DARUNAVIR
     Dosage: UNK
  50. RALTEGRAVIR. [Concomitant]
     Active Substance: RALTEGRAVIR
     Indication: ANTIRETROVIRAL THERAPY
     Dosage: UNK
  51. RALTEGRAVIR. [Concomitant]
     Active Substance: RALTEGRAVIR
     Dosage: UNK
  52. RALTEGRAVIR. [Concomitant]
     Active Substance: RALTEGRAVIR
     Dosage: UNK
  53. RALTEGRAVIR. [Concomitant]
     Active Substance: RALTEGRAVIR
     Dosage: UNK
  54. RALTEGRAVIR. [Concomitant]
     Active Substance: RALTEGRAVIR
     Dosage: UNK
  55. RALTEGRAVIR. [Concomitant]
     Active Substance: RALTEGRAVIR
     Dosage: UNK
  56. RALTEGRAVIR. [Concomitant]
     Active Substance: RALTEGRAVIR
     Dosage: UNK
  57. RALTEGRAVIR. [Concomitant]
     Active Substance: RALTEGRAVIR
     Dosage: UNK
  58. RALTEGRAVIR. [Concomitant]
     Active Substance: RALTEGRAVIR
     Dosage: UNK
  59. RALTEGRAVIR. [Concomitant]
     Active Substance: RALTEGRAVIR
     Dosage: UNK
  60. METFORMIN [Suspect]
     Active Substance: METFORMIN HYDROCHLORIDE
     Indication: PRODUCT USED FOR UNKNOWN INDICATION
     Dosage: UNK
     Route: 065
  61. METFORMIN [Suspect]
     Active Substance: METFORMIN HYDROCHLORIDE
     Dosage: UNK
     Route: 065
  62. METFORMIN [Suspect]
     Active Substance: METFORMIN HYDROCHLORIDE
     Dosage: UNK
     Route: 065
  63. METFORMIN [Suspect]
     Active Substance: METFORMIN HYDROCHLORIDE
     Dosage: UNK
     Route: 065
  64. METFORMIN [Suspect]
     Active Substance: METFORMIN HYDROCHLORIDE
     Dosage: UNK
     Route: 065
  65. METFORMIN [Suspect]
     Active Substance: METFORMIN HYDROCHLORIDE
     Dosage: UNK
     Route: 065
  66. METFORMIN [Suspect]
     Active Substance: METFORMIN HYDROCHLORIDE
     Dosage: UNK
     Route: 065
  67. METFORMIN [Suspect]
     Active Substance: METFORMIN HYDROCHLORIDE
     Dosage: UNK
     Route: 065
  68. METFORMIN [Suspect]
     Active Substance: METFORMIN HYDROCHLORIDE
     Dosage: UNK
     Route: 065
  69. METFORMIN [Suspect]
     Active Substance: METFORMIN HYDROCHLORIDE
     Dosage: UNK
     Route: 065
  70. DARUNAVIR [Concomitant]
     Active Substance: DARUNAVIR
     Dosage: UNK
  71. DARUNAVIR [Concomitant]
     Active Substance: DARUNAVIR
     Dosage: UNK
  72. DARUNAVIR [Concomitant]
     Active Substance: DARUNAVIR
     Dosage: UNK
  73. DARUNAVIR [Concomitant]
     Active Substance: DARUNAVIR
     Dosage: UNK
  74. DARUNAVIR [Concomitant]
     Active Substance: DARUNAVIR
     Dosage: UNK
  75. DARUNAVIR [Concomitant]
     Active Substance: DARUNAVIR
     Dosage: UNK
  76. DARUNAVIR [Concomitant]
     Active Substance: DARUNAVIR
     Dosage: UNK
  77. DARUNAVIR [Concomitant]
     Active Substance: DARUNAVIR
     Dosage: UNK
  78. DARUNAVIR [Concomitant]
     Active Substance: DARUNAVIR
     Dosage: UNK
  79. DARUNAVIR [Concomitant]
     Active Substance: DARUNAVIR
     Dosage: UNK
  80. RALTEGRAVIR. [Concomitant]
     Active Substance: RALTEGRAVIR
     Dosage: UNK
  81. RALTEGRAVIR. [Concomitant]
     Active Substance: RALTEGRAVIR
     Dosage: UNK
  82. RALTEGRAVIR. [Concomitant]
     Active Substance: RALTEGRAVIR
     Dosage: UNK
  83. RALTEGRAVIR. [Concomitant]
     Active Substance: RALTEGRAVIR
     Dosage: UNK
  84. RALTEGRAVIR. [Concomitant]
     Active Substance: RALTEGRAVIR
     Dosage: UNK
  85. RALTEGRAVIR. [Concomitant]
     Active Substance: RALTEGRAVIR
     Dosage: UNK
  86. RALTEGRAVIR. [Concomitant]
     Active Substance: RALTEGRAVIR
     Dosage: UNK
  87. RALTEGRAVIR. [Concomitant]
     Active Substance: RALTEGRAVIR
     Dosage: UNK
  88. RALTEGRAVIR. [Concomitant]
     Active Substance: RALTEGRAVIR
     Dosage: UNK
  89. RALTEGRAVIR. [Concomitant]
     Active Substance: RALTEGRAVIR
     Dosage: UNK
  90. RALTEGRAVIR. [Concomitant]
     Active Substance: RALTEGRAVIR
     Dosage: UNK
  91. RALTEGRAVIR. [Concomitant]
     Active Substance: RALTEGRAVIR
     Dosage: UNK
  92. METFORMIN [Suspect]
     Active Substance: METFORMIN HYDROCHLORIDE
     Dosage: UNK
     Route: 065
  93. METFORMIN [Suspect]
     Active Substance: METFORMIN HYDROCHLORIDE
     Dosage: UNK
     Route: 065
  94. METFORMIN [Suspect]
     Active Substance: METFORMIN HYDROCHLORIDE
     Dosage: UNK
     Route: 065
  95. METFORMIN [Suspect]
     Active Substance: METFORMIN HYDROCHLORIDE
     Dosage: UNK
     Route: 065
  96. METFORMIN [Suspect]
     Active Substance: METFORMIN HYDROCHLORIDE
     Dosage: UNK
     Route: 065
  97. METFORMIN [Suspect]
     Active Substance: METFORMIN HYDROCHLORIDE
     Dosage: UNK
     Route: 065
  98. METFORMIN [Suspect]
     Active Substance: METFORMIN HYDROCHLORIDE
     Dosage: UNK
     Route: 065
  99. METFORMIN [Suspect]
     Active Substance: METFORMIN HYDROCHLORIDE
     Dosage: UNK
     Route: 065
  100. DARUNAVIR [Concomitant]
     Active Substance: DARUNAVIR
     Dosage: UNK
  101. DARUNAVIR [Concomitant]
     Active Substance: DARUNAVIR
     Dosage: UNK
  102. DARUNAVIR [Concomitant]
     Active Substance: DARUNAVIR
     Dosage: UNK
  103. DARUNAVIR [Concomitant]
     Active Substance: DARUNAVIR
     Dosage: UNK
  104. DARUNAVIR [Concomitant]
     Active Substance: DARUNAVIR
     Dosage: UNK
  105. DARUNAVIR [Concomitant]
     Active Substance: DARUNAVIR
     Dosage: UNK
  106. DARUNAVIR [Concomitant]
     Active Substance: DARUNAVIR
     Dosage: UNK
  107. DARUNAVIR [Concomitant]
     Active Substance: DARUNAVIR
     Dosage: UNK
  108. DARUNAVIR [Concomitant]
     Active Substance: DARUNAVIR
     Dosage: UNK
  109. DARUNAVIR [Concomitant]
     Active Substance: DARUNAVIR
     Dosage: UNK
  110. RALTEGRAVIR. [Concomitant]
     Active Substance: RALTEGRAVIR
     Route: 065
  111. RALTEGRAVIR. [Concomitant]
     Active Substance: RALTEGRAVIR
     Dosage: UNK
  112. RALTEGRAVIR. [Concomitant]
     Active Substance: RALTEGRAVIR
     Dosage: UNK
  113. RALTEGRAVIR. [Concomitant]
     Active Substance: RALTEGRAVIR
     Dosage: UNK
  114. RALTEGRAVIR. [Concomitant]
     Active Substance: RALTEGRAVIR
     Dosage: UNK
  115. RALTEGRAVIR. [Concomitant]
     Active Substance: RALTEGRAVIR
     Dosage: UNK
  116. RALTEGRAVIR. [Concomitant]
     Active Substance: RALTEGRAVIR
     Dosage: UNK
  117. RALTEGRAVIR. [Concomitant]
     Active Substance: RALTEGRAVIR
     Dosage: UNK
  118. RALTEGRAVIR. [Concomitant]
     Active Substance: RALTEGRAVIR
     Dosage: UNK
  119. METFORMIN [Suspect]
     Active Substance: METFORMIN HYDROCHLORIDE
     Dosage: UNK
     Route: 065
  120. METFORMIN [Suspect]
     Active Substance: METFORMIN HYDROCHLORIDE
     Dosage: UNK
     Route: 065
  121. METFORMIN [Suspect]
     Active Substance: METFORMIN HYDROCHLORIDE
     Dosage: UNK
     Route: 065
  122. METFORMIN [Suspect]
     Active Substance: METFORMIN HYDROCHLORIDE
     Dosage: UNK
     Route: 065
  123. METFORMIN [Suspect]
     Active Substance: METFORMIN HYDROCHLORIDE
     Dosage: UNK
     Route: 065
  124. METFORMIN [Suspect]
     Active Substance: METFORMIN HYDROCHLORIDE
     Dosage: UNK
     Route: 065
  125. METFORMIN [Suspect]
     Active Substance: METFORMIN HYDROCHLORIDE
     Dosage: UNK
     Route: 065
  126. METFORMIN [Suspect]
     Active Substance: METFORMIN HYDROCHLORIDE
     Dosage: UNK
     Route: 065
  127. DARUNAVIR [Concomitant]
     Active Substance: DARUNAVIR
     Dosage: UNK
  128. DARUNAVIR [Concomitant]
     Active Substance: DARUNAVIR
     Dosage: UNK
  129. DARUNAVIR [Concomitant]
     Active Substance: DARUNAVIR
     Dosage: UNK
  130. DARUNAVIR [Concomitant]
     Active Substance: DARUNAVIR
     Dosage: UNK
  131. DARUNAVIR [Concomitant]
     Active Substance: DARUNAVIR
     Dosage: UNK
  132. DARUNAVIR [Concomitant]
     Active Substance: DARUNAVIR
     Dosage: UNK
  133. DARUNAVIR [Concomitant]
     Active Substance: DARUNAVIR
     Dosage: UNK
  134. DARUNAVIR [Concomitant]
     Active Substance: DARUNAVIR
     Dosage: UNK
  135. DARUNAVIR [Concomitant]
     Active Substance: DARUNAVIR
     Dosage: UNK
  136. DARUNAVIR [Concomitant]
     Active Substance: DARUNAVIR
     Dosage: UNK
  137. RALTEGRAVIR. [Concomitant]
     Active Substance: RALTEGRAVIR
     Dosage: UNK
  138. RALTEGRAVIR. [Concomitant]
     Active Substance: RALTEGRAVIR
     Dosage: UNK
  139. RALTEGRAVIR. [Concomitant]
     Active Substance: RALTEGRAVIR
     Dosage: UNK
  140. RALTEGRAVIR. [Concomitant]
     Active Substance: RALTEGRAVIR
     Dosage: UNK
  141. RALTEGRAVIR. [Concomitant]
     Active Substance: RALTEGRAVIR
     Dosage: UNK
  142. RALTEGRAVIR. [Concomitant]
     Active Substance: RALTEGRAVIR
     Dosage: UNK
  143. RALTEGRAVIR. [Concomitant]
     Active Substance: RALTEGRAVIR
     Dosage: UNK
  144. RALTEGRAVIR. [Concomitant]
     Active Substance: RALTEGRAVIR
     Dosage: UNK
  145. RALTEGRAVIR. [Concomitant]
     Active Substance: RALTEGRAVIR
     Dosage: UNK
  146. RALTEGRAVIR. [Concomitant]
     Active Substance: RALTEGRAVIR
     Dosage: UNK
  147. RALTEGRAVIR. [Concomitant]
     Active Substance: RALTEGRAVIR
     Dosage: UNK
  148. RITONAVIR TABLET [Concomitant]
  149. METFORMIN [Suspect]
     Active Substance: METFORMIN HYDROCHLORIDE
     Dosage: UNK
     Route: 065
  150. METFORMIN [Suspect]
     Active Substance: METFORMIN HYDROCHLORIDE
     Dosage: UNK
     Route: 065
  151. METFORMIN [Suspect]
     Active Substance: METFORMIN HYDROCHLORIDE
     Dosage: UNK
     Route: 065
  152. METFORMIN [Suspect]
     Active Substance: METFORMIN HYDROCHLORIDE
     Dosage: UNK
     Route: 065
  153. METFORMIN [Suspect]
     Active Substance: METFORMIN HYDROCHLORIDE
     Dosage: UNK
     Route: 065
  154. METFORMIN [Suspect]
     Active Substance: METFORMIN HYDROCHLORIDE
     Dosage: UNK
     Route: 065
  155. METFORMIN [Suspect]
     Active Substance: METFORMIN HYDROCHLORIDE
     Dosage: UNK
     Route: 065
  156. DARUNAVIR [Concomitant]
     Active Substance: DARUNAVIR
     Dosage: UNK
  157. DARUNAVIR [Concomitant]
     Active Substance: DARUNAVIR
     Dosage: UNK
  158. DARUNAVIR [Concomitant]
     Active Substance: DARUNAVIR
     Dosage: UNK
  159. DARUNAVIR [Concomitant]
     Active Substance: DARUNAVIR
     Dosage: UNK
  160. DARUNAVIR [Concomitant]
     Active Substance: DARUNAVIR
     Dosage: UNK
  161. DARUNAVIR [Concomitant]
     Active Substance: DARUNAVIR
     Dosage: UNK
  162. DARUNAVIR [Concomitant]
     Active Substance: DARUNAVIR
     Dosage: UNK
  163. DARUNAVIR [Concomitant]
     Active Substance: DARUNAVIR
     Dosage: UNK
  164. RALTEGRAVIR. [Concomitant]
     Active Substance: RALTEGRAVIR
     Dosage: UNK
  165. RALTEGRAVIR. [Concomitant]
     Active Substance: RALTEGRAVIR
     Dosage: UNK
  166. RALTEGRAVIR. [Concomitant]
     Active Substance: RALTEGRAVIR
     Dosage: UNK
  167. RALTEGRAVIR. [Concomitant]
     Active Substance: RALTEGRAVIR
     Dosage: UNK
  168. RALTEGRAVIR. [Concomitant]
     Active Substance: RALTEGRAVIR
     Dosage: UNK
  169. RALTEGRAVIR. [Concomitant]
     Active Substance: RALTEGRAVIR
     Dosage: UNK
  170. RALTEGRAVIR. [Concomitant]
     Active Substance: RALTEGRAVIR
     Dosage: UNK
  171. RALTEGRAVIR. [Concomitant]
     Active Substance: RALTEGRAVIR
     Dosage: UNK
  172. RALTEGRAVIR. [Concomitant]
     Active Substance: RALTEGRAVIR
     Dosage: UNK
  173. TENOFOVIR DISOPROXIL FUMARATE. [Suspect]
     Active Substance: TENOFOVIR DISOPROXIL FUMARATE
     Indication: ANTIRETROVIRAL THERAPY
  174. METFORMIN [Suspect]
     Active Substance: METFORMIN HYDROCHLORIDE
     Dosage: UNK
     Route: 065
  175. METFORMIN [Suspect]
     Active Substance: METFORMIN HYDROCHLORIDE
     Dosage: UNK
     Route: 065
  176. METFORMIN [Suspect]
     Active Substance: METFORMIN HYDROCHLORIDE
     Dosage: UNK
     Route: 065
  177. METFORMIN [Suspect]
     Active Substance: METFORMIN HYDROCHLORIDE
     Dosage: UNK
     Route: 065
  178. METFORMIN [Suspect]
     Active Substance: METFORMIN HYDROCHLORIDE
     Dosage: UNK
     Route: 065
  179. DARUNAVIR [Concomitant]
     Active Substance: DARUNAVIR
     Dosage: UNK
  180. DARUNAVIR [Concomitant]
     Active Substance: DARUNAVIR
     Dosage: UNK
  181. DARUNAVIR [Concomitant]
     Active Substance: DARUNAVIR
     Dosage: UNK
  182. DARUNAVIR [Concomitant]
     Active Substance: DARUNAVIR
     Dosage: UNK
  183. DARUNAVIR [Concomitant]
     Active Substance: DARUNAVIR
     Dosage: UNK
  184. DARUNAVIR [Concomitant]
     Active Substance: DARUNAVIR
     Dosage: UNK
  185. DARUNAVIR [Concomitant]
     Active Substance: DARUNAVIR
     Dosage: UNK
  186. DARUNAVIR [Concomitant]
     Active Substance: DARUNAVIR
     Dosage: UNK
  187. DARUNAVIR [Concomitant]
     Active Substance: DARUNAVIR
     Dosage: UNK
  188. DARUNAVIR [Concomitant]
     Active Substance: DARUNAVIR
     Dosage: UNK
  189. DARUNAVIR [Concomitant]
     Active Substance: DARUNAVIR
     Dosage: UNK
  190. RALTEGRAVIR. [Concomitant]
     Active Substance: RALTEGRAVIR
     Dosage: UNK
  191. RALTEGRAVIR. [Concomitant]
     Active Substance: RALTEGRAVIR
     Dosage: UNK
  192. RALTEGRAVIR. [Concomitant]
     Active Substance: RALTEGRAVIR
     Dosage: UNK
  193. RALTEGRAVIR. [Concomitant]
     Active Substance: RALTEGRAVIR
     Dosage: UNK
  194. RALTEGRAVIR. [Concomitant]
     Active Substance: RALTEGRAVIR
     Dosage: UNK
  195. RALTEGRAVIR. [Concomitant]
     Active Substance: RALTEGRAVIR
     Dosage: UNK
  196. RALTEGRAVIR. [Concomitant]
     Active Substance: RALTEGRAVIR
     Dosage: UNK
  197. RALTEGRAVIR. [Concomitant]
     Active Substance: RALTEGRAVIR
     Dosage: UNK
  198. RALTEGRAVIR. [Concomitant]
     Active Substance: RALTEGRAVIR
     Dosage: UNK
  199. RALTEGRAVIR. [Concomitant]
     Active Substance: RALTEGRAVIR
     Dosage: UNK
  200. TENOFOVIR DISOPROXIL FUMARATE. [Suspect]
     Active Substance: TENOFOVIR DISOPROXIL FUMARATE
     Indication: HIV INFECTION
     Dosage: UNK
     Route: 065
  201. METFORMIN [Suspect]
     Active Substance: METFORMIN HYDROCHLORIDE
     Dosage: UNK
     Route: 065
  202. METFORMIN [Suspect]
     Active Substance: METFORMIN HYDROCHLORIDE
     Dosage: UNK
     Route: 065
  203. METFORMIN [Suspect]
     Active Substance: METFORMIN HYDROCHLORIDE
     Dosage: UNK
     Route: 065
  204. METFORMIN [Suspect]
     Active Substance: METFORMIN HYDROCHLORIDE
     Dosage: UNK
     Route: 065
  205. METFORMIN [Suspect]
     Active Substance: METFORMIN HYDROCHLORIDE
     Dosage: UNK
     Route: 065
  206. DARUNAVIR [Concomitant]
     Active Substance: DARUNAVIR
     Indication: ANTIRETROVIRAL THERAPY
  207. DARUNAVIR [Concomitant]
     Active Substance: DARUNAVIR
     Dosage: UNK
  208. DARUNAVIR [Concomitant]
     Active Substance: DARUNAVIR
     Dosage: UNK
  209. DARUNAVIR [Concomitant]
     Active Substance: DARUNAVIR
     Dosage: UNK
  210. DARUNAVIR [Concomitant]
     Active Substance: DARUNAVIR
     Dosage: UNK
  211. DARUNAVIR [Concomitant]
     Active Substance: DARUNAVIR
     Dosage: UNK
  212. DARUNAVIR [Concomitant]
     Active Substance: DARUNAVIR
     Dosage: UNK
  213. DARUNAVIR [Concomitant]
     Active Substance: DARUNAVIR
     Dosage: UNK
  214. DARUNAVIR [Concomitant]
     Active Substance: DARUNAVIR
     Dosage: UNK
  215. DARUNAVIR [Concomitant]
     Active Substance: DARUNAVIR
     Dosage: UNK
  216. DARUNAVIR [Concomitant]
     Active Substance: DARUNAVIR
     Dosage: UNK
  217. DARUNAVIR [Concomitant]
     Active Substance: DARUNAVIR
     Dosage: UNK
  218. DARUNAVIR [Concomitant]
     Active Substance: DARUNAVIR
     Dosage: UNK
  219. RALTEGRAVIR. [Concomitant]
     Active Substance: RALTEGRAVIR
     Dosage: UNK
  220. RALTEGRAVIR. [Concomitant]
     Active Substance: RALTEGRAVIR
     Dosage: UNK
  221. RALTEGRAVIR. [Concomitant]
     Active Substance: RALTEGRAVIR
     Dosage: UNK
  222. RALTEGRAVIR. [Concomitant]
     Active Substance: RALTEGRAVIR
     Dosage: UNK
  223. RALTEGRAVIR. [Concomitant]
     Active Substance: RALTEGRAVIR
     Dosage: UNK
  224. RALTEGRAVIR. [Concomitant]
     Active Substance: RALTEGRAVIR
     Dosage: UNK
  225. RALTEGRAVIR. [Concomitant]
     Active Substance: RALTEGRAVIR
     Dosage: UNK
  226. RALTEGRAVIR. [Concomitant]
     Active Substance: RALTEGRAVIR
     Dosage: UNK
  227. RALTEGRAVIR. [Concomitant]
     Active Substance: RALTEGRAVIR
     Dosage: UNK
  228. RALTEGRAVIR. [Concomitant]
     Active Substance: RALTEGRAVIR
     Dosage: UNK
  229. EMTRICITABINE [Concomitant]
     Active Substance: EMTRICITABINE

REACTIONS (3)
  - Acute kidney injury [Unknown]
  - Nephropathy toxic [Unknown]
  - Renal tubular dysfunction [Unknown]
